FAERS Safety Report 24226424 (Version 2)
Quarter: 2024Q3

REPORT INFORMATION
  Report Type: Spontaneous
  Country: CA (occurrence: None)
  Receive Date: 20240820
  Receipt Date: 20240913
  Transmission Date: 20241017
  Serious: Yes (Other)
  Sender: ORION
  Company Number: CA-PFIZER INC-202400237023

PATIENT
  Age: 9 Year
  Sex: Female

DRUGS (3)
  1. METHOTREXATE [Suspect]
     Active Substance: METHOTREXATE
     Indication: Crohn^s disease
     Dates: start: 2024
  2. METHOTREXATE [Suspect]
     Active Substance: METHOTREXATE
     Dosage: ESCALATED NOW
     Dates: start: 2024
  3. INFLIXIMAB [Concomitant]
     Active Substance: INFLIXIMAB
     Indication: Crohn^s disease

REACTIONS (6)
  - Growth failure [Unknown]
  - Product use in unapproved indication [Unknown]
  - Crohn^s disease [Unknown]
  - Blood albumin decreased [Unknown]
  - Anorectal disorder [Not Recovered/Not Resolved]
  - Middle insomnia [Unknown]

NARRATIVE: CASE EVENT DATE: 20240101
